FAERS Safety Report 10396890 (Version 2)
Quarter: 2014Q3

REPORT INFORMATION
  Report Type: Spontaneous
  Country: US (occurrence: US)
  Receive Date: 20140820
  Receipt Date: 20140820
  Transmission Date: 20150326
  Serious: Yes (Hospitalization, Other)
  Sender: FDA-Public Use
  Company Number: US-UCBSA-107160

PATIENT
  Age: 53 Year
  Sex: Female
  Weight: 83.91 kg

DRUGS (16)
  1. VIMPAT [Suspect]
     Active Substance: LACOSAMIDE
     Indication: CONVULSION
     Dosage: STRENGTH: 200 MG QD AT BED TIME
     Route: 048
  2. TOPRAMEX [Concomitant]
     Indication: MIGRAINE
     Dosage: 100 MG, 2X/DAY (BID)
     Route: 048
     Dates: start: 2008
  3. JANOVA [Concomitant]
     Indication: DIABETES MELLITUS
     Dosage: 10 MG, 2X/DAY (BID)
     Route: 048
     Dates: start: 201302
  4. INSULIN PEN -LEVEMIR FLEX [Concomitant]
     Dosage: DOSE PER INTAKE: 10 UNITS A BED TIME
  5. FLEXERIL [Concomitant]
     Active Substance: CYCLOBENZAPRINE HYDROCHLORIDE
     Dosage: 10 MG, 2X/DAY (BID)
     Route: 048
     Dates: start: 2001
  6. IMITREX [Concomitant]
     Active Substance: SUMATRIPTAN\SUMATRIPTAN SUCCINATE
     Indication: MIGRAINE
     Dosage: 100 MG, AS NEEDED (PRN)
     Route: 048
     Dates: start: 201302
  7. METHADONE [Concomitant]
     Active Substance: METHADONE HYDROCHLORIDE
     Indication: PAIN
     Dosage: 5 MG, 3X/DAY (TID)
     Route: 048
  8. HYDROCODONE [Concomitant]
     Active Substance: HYDROCODONE
     Indication: PAIN
     Dosage: DOSE PER INTAKE 10/325 MG ONCE EVERY 12 HOURS
     Route: 048
  9. NEURONTIN GENERIC [Concomitant]
     Dosage: BED TIME
     Route: 048
     Dates: start: 2001
  10. GLIPIZIDE. [Concomitant]
     Active Substance: GLIPIZIDE
     Dosage: 100 MG QD AT BREAKFAST
     Dates: start: 201302
  11. TAXIDINE [Concomitant]
     Dosage: 4 MG, 3X/DAY (TID)
     Route: 048
     Dates: start: 2001
  12. PHENERGAN [Concomitant]
     Active Substance: PROMETHAZINE HYDROCHLORIDE
     Indication: NAUSEA
     Dosage: 25 MG, AS NEEDED (PRN)
     Route: 048
  13. VIMPAT [Suspect]
     Active Substance: LACOSAMIDE
     Indication: NEUROPATHY PERIPHERAL
  14. OMEPRAZOLE. [Concomitant]
     Active Substance: OMEPRAZOLE
     Indication: GASTROOESOPHAGEAL REFLUX DISEASE
     Dosage: BED TIME TAKING FOR YEARS- SINCE 20 YEARS OLD
     Route: 048
  15. LITHIUM [Concomitant]
     Active Substance: LITHIUM CARBONATE
     Dosage: BED TIME
     Route: 048
     Dates: start: 2005
  16. METROPROLOL [Concomitant]
     Active Substance: METOPROLOL
     Indication: AUTONOMIC NERVOUS SYSTEM IMBALANCE
     Dosage: BED TIME
     Route: 048
     Dates: start: 2001

REACTIONS (9)
  - Abdominal pain upper [Recovering/Resolving]
  - Splenomegaly [Unknown]
  - Pneumonia [Recovered/Resolved]
  - Diverticulum [Recovered/Resolved]
  - Off label use [Unknown]
  - Blood glucose increased [Recovering/Resolving]
  - Headache [Not Recovered/Not Resolved]
  - Nephrolithiasis [Recovered/Resolved]
  - Anaemia [Recovering/Resolving]

NARRATIVE: CASE EVENT DATE: 201312
